FAERS Safety Report 5059546-8 (Version None)
Quarter: 2006Q2

REPORT INFORMATION
  Report Type: 
  Country: None (occurrence: None)
  Receive Date: 20060629
  Receipt Date: 20060209
  Transmission Date: 20061013
  Serious: No
  Sender: FDA-Public Use
  Company Number: PHEH2006US02007

PATIENT
  Age: 59 Year
  Sex: Female

DRUGS (1)
  1. ENABLEX [Suspect]
     Indication: URINARY INCONTINENCE
     Dosage: 15 MG, QD
     Dates: start: 20060207

REACTIONS (3)
  - DRY MOUTH [None]
  - HEADACHE [None]
  - STOMACH DISCOMFORT [None]
